FAERS Safety Report 8405186-X (Version None)
Quarter: 2012Q2

REPORT INFORMATION
  Report Type: 
  Country: None (occurrence: None)
  Receive Date: 20120603
  Receipt Date: 20120524
  Transmission Date: 20120825
  Serious: Yes (Other)
  Sender: FDA-Public Use
  Company Number: JP-VERTEX PHARMACEUTICALS INC.-AE-2012-004044

PATIENT
  Age: 60 Year
  Sex: Male

DRUGS (6)
  1. REBETOL [Concomitant]
     Indication: HEPATITIS C
     Route: 048
     Dates: start: 20120309, end: 20120313
  2. ENALAPRIL MALEATE [Concomitant]
     Route: 048
  3. PEGINTERFERON [Concomitant]
     Route: 058
     Dates: start: 20120309, end: 20120309
  4. ALLOPURINOL [Concomitant]
     Route: 048
  5. TELAVIC (TELAPREVIR) [Suspect]
     Indication: HEPATITIS C
     Route: 048
     Dates: start: 20120309, end: 20120313
  6. DEPAS [Concomitant]
     Route: 048

REACTIONS (2)
  - RASH [None]
  - RENAL IMPAIRMENT [None]
